FAERS Safety Report 20097661 (Version 1)
Quarter: 2021Q4

REPORT INFORMATION
  Report Type: Spontaneous
  Country: CH (occurrence: CH)
  Receive Date: 20211122
  Receipt Date: 20211122
  Transmission Date: 20220303
  Serious: Yes (Other)
  Sender: FDA-Public Use
  Company Number: None

PATIENT
  Age: 62 Year
  Sex: Female

DRUGS (9)
  1. DILTIAZEM [Interacting]
     Active Substance: DILTIAZEM
     Indication: Hypertension
     Dosage: 90 MG, 2X/DAY (ONLY ON DAYS UNDER REGORAFENIB)
     Route: 048
     Dates: start: 20211009
  2. DILTIAZEM [Interacting]
     Active Substance: DILTIAZEM
     Dosage: 90 MG, 2X/DAY (ONLY ON DAYS UNDER REGORAFENIB)
     Route: 048
     Dates: start: 2020, end: 20210908
  3. STIVARGA [Interacting]
     Active Substance: REGORAFENIB
     Indication: Colorectal cancer metastatic
     Dosage: 3 WEEKS OUT OF 4
     Route: 048
     Dates: start: 2021, end: 2021
  4. STIVARGA [Interacting]
     Active Substance: REGORAFENIB
     Dosage: 3 WEEKS OUT OF 4
     Route: 048
     Dates: start: 2021
  5. HYDROCHLOROTHIAZIDE [Concomitant]
     Active Substance: HYDROCHLOROTHIAZIDE
     Dosage: UNK
     Route: 048
  6. CARVEDILOL [Concomitant]
     Active Substance: CARVEDILOL
     Dosage: UNK
     Route: 048
  7. PREGABALIN [Concomitant]
     Active Substance: PREGABALIN
     Dosage: UNK
     Route: 048
  8. GLUCOPHAGE [Concomitant]
     Active Substance: METFORMIN HYDROCHLORIDE
     Dosage: UNK
     Route: 048
  9. ENTECAVIR [Concomitant]
     Active Substance: ENTECAVIR
     Dosage: UNK
     Route: 048

REACTIONS (2)
  - Hypertension [Not Recovered/Not Resolved]
  - Drug interaction [Not Recovered/Not Resolved]

NARRATIVE: CASE EVENT DATE: 20210101
